FAERS Safety Report 20808437 (Version 1)
Quarter: 2022Q2

REPORT INFORMATION
  Report Type: Spontaneous
  Country: DK (occurrence: DK)
  Receive Date: 20220510
  Receipt Date: 20220510
  Transmission Date: 20220720
  Serious: Yes (Other)
  Sender: FDA-Public Use
  Company Number: None

PATIENT
  Age: 34 Year
  Sex: Female

DRUGS (6)
  1. ABILIFY [Suspect]
     Active Substance: ARIPIPRAZOLE
     Indication: Schizophrenia
     Dosage: UNK, QD (VARYING DOSE OF 10-20 MG. POTENCY: 10 AND 15 MG)
     Route: 048
     Dates: start: 20160503, end: 20170109
  2. ABILIFY [Suspect]
     Active Substance: ARIPIPRAZOLE
     Dosage: 10 MG, QD (1 A DAY)
     Route: 048
     Dates: start: 20160520, end: 20161005
  3. ABILIFY [Suspect]
     Active Substance: ARIPIPRAZOLE
     Dosage: 2 DF, QD (2 TBL. OF 10 MGX 1 DGL)
     Route: 048
     Dates: start: 20161005, end: 20170109
  4. CITALOPRAM [Suspect]
     Active Substance: CITALOPRAM HYDROBROMIDE
     Indication: Depression
     Dosage: 30 MG, QD (POTENCY: 10 AND 20 MG)
     Route: 048
     Dates: start: 20140106, end: 20170109
  5. CITALOPRAM [Suspect]
     Active Substance: CITALOPRAM HYDROBROMIDE
     Dosage: 20 MG, QD
     Route: 048
     Dates: start: 2013, end: 20170125
  6. CITALOPRAM [Suspect]
     Active Substance: CITALOPRAM HYDROBROMIDE
     Dosage: 10 MG, QD
     Route: 048
     Dates: start: 2013, end: 20170125

REACTIONS (7)
  - Cyanosis [Unknown]
  - Feeling abnormal [Recovered/Resolved]
  - Atrial fibrillation [Unknown]
  - Hypersomnia [Recovered/Resolved]
  - Hallucination [Unknown]
  - Fatigue [Unknown]
  - Somnolence [Unknown]

NARRATIVE: CASE EVENT DATE: 20160501
